FAERS Safety Report 9035887 (Version 1)
Quarter: 2013Q1

REPORT INFORMATION
  Report Type: Spontaneous
  Country: US (occurrence: US)
  Receive Date: 20130129
  Receipt Date: 20130129
  Transmission Date: 20140127
  Serious: No
  Sender: FDA-Public Use
  Company Number: US-ABBOTT-12P-163-0919958-00

PATIENT
  Sex: Female
  Weight: 59.02 kg

DRUGS (4)
  1. HUMIRA 40 MG/0.8 ML PEN [Suspect]
     Indication: RHEUMATOID ARTHRITIS
     Dates: start: 2010
  2. PREDNISONE [Concomitant]
     Indication: RHEUMATOID ARTHRITIS
  3. LEVOXYL [Concomitant]
     Indication: HYPOTHYROIDISM
  4. ATENOLOL [Concomitant]
     Indication: HYPERTENSION

REACTIONS (8)
  - Rheumatoid arthritis [Not Recovered/Not Resolved]
  - Injection site reaction [Recovered/Resolved]
  - Drug administration error [Recovered/Resolved]
  - Device malfunction [Recovered/Resolved]
  - Device malfunction [Recovered/Resolved]
  - Drug dose omission [Recovered/Resolved]
  - Joint swelling [Not Recovered/Not Resolved]
  - Joint swelling [Not Recovered/Not Resolved]
